FAERS Safety Report 5217757-2 (Version None)
Quarter: 2006Q4

REPORT INFORMATION
  Report Type: 
  Country: None (occurrence: None)
  Receive Date: 20061130
  Receipt Date: 20060815
  Transmission Date: 20070319
  Serious: Yes (Other)
  Sender: FDA-Public Use
  Company Number: US200608004150

PATIENT
  Sex: Female
  Weight: 99.8 kg

DRUGS (3)
  1. ZYPREXA [Suspect]
     Indication: BIPOLAR DISORDER
     Dosage: 10 MG, DAILY (1/D); 2.5 MG, 3/D
     Dates: start: 19990101, end: 20051201
  2. ZYPREXA [Suspect]
     Indication: BIPOLAR DISORDER
     Dosage: 10 MG, DAILY (1/D); 2.5 MG, 3/D
     Dates: start: 20020101
  3. DEPAKOTE [Concomitant]

REACTIONS (4)
  - DIABETES MELLITUS [None]
  - DIABETIC COMA [None]
  - METABOLIC DISORDER [None]
  - OBESITY [None]
